FAERS Safety Report 4653204-7 (Version None)
Quarter: 2005Q2

REPORT INFORMATION
  Report Type: 
  Country: None (occurrence: None)
  Receive Date: 20050503
  Receipt Date: 20050425
  Transmission Date: 20051028
  Serious: Yes (Death)
  Sender: FDA-Public Use
  Company Number: DSK-2005-02718

PATIENT
  Age: 54 Year
  Sex: Male

DRUGS (14)
  1. DV-7314 (STUDY CODE NOT BROKEN, ONE OF CLOPIDOGREL/TICLOPIDINE) (CLOPI [Suspect]
     Indication: THROMBOSIS PROPHYLAXIS
     Dosage: 75 MG PER ORAL
     Route: 048
     Dates: start: 20040830
  2. ASPIRIN [Concomitant]
  3. HEPARIN [Concomitant]
  4. MYOCOR (GLYCERYL TRINITRATE) [Concomitant]
  5. NITROPEN (GLYCERYL TRINITRATE) [Concomitant]
  6. ISOSORBIDE DINITRATE [Concomitant]
  7. MICARDIS [Concomitant]
  8. METOPROLOL TARTRATE [Concomitant]
  9. DILTIAZEM HYDROCHLORIDE [Concomitant]
  10. DOYLE (ASPOXICILLIN) [Concomitant]
  11. DIAZEPAM [Concomitant]
  12. IOPAMIRON (IOPAMIDOL) [Concomitant]
  13. XYLOCAINE [Concomitant]
  14. MAGLAX (MAGNESIUM OXIDE) [Concomitant]

REACTIONS (3)
  - CARDIO-RESPIRATORY ARREST [None]
  - GENERAL PHYSICAL CONDITION ABNORMAL [None]
  - SUDDEN DEATH [None]
